FAERS Safety Report 24274042 (Version 1)
Quarter: 2024Q3

REPORT INFORMATION
  Report Type: Spontaneous
  Country: CZ (occurrence: CZ)
  Receive Date: 20240902
  Receipt Date: 20240902
  Transmission Date: 20241017
  Serious: Yes (Life-Threatening, Hospitalization, Other)
  Sender: SANDOZ
  Company Number: CZ-002147023-NVSC2021CZ062855

PATIENT
  Age: 8 Year
  Sex: Male
  Weight: 18 kg

DRUGS (8)
  1. ADALIMUMAB [Suspect]
     Active Substance: ADALIMUMAB
     Indication: Colitis ulcerative
     Dosage: UNK
     Route: 065
  2. ADALIMUMAB [Suspect]
     Active Substance: ADALIMUMAB
     Indication: Coeliac disease
  3. IMURAN [Suspect]
     Active Substance: AZATHIOPRINE
     Indication: Colitis ulcerative
     Dosage: 1.2 MG/KG/DAY
     Route: 065
  4. IMURAN [Suspect]
     Active Substance: AZATHIOPRINE
     Indication: Coeliac disease
     Dosage: 2.5 MG/KG, QD
     Route: 048
     Dates: start: 20110614, end: 20110727
  5. INFLIXIMAB [Suspect]
     Active Substance: INFLIXIMAB
     Dosage: 15 MG/KG (6TH DOSE)
     Route: 065
  6. INFLIXIMAB [Suspect]
     Active Substance: INFLIXIMAB
     Dosage: 5 MG/KG
     Route: 042
     Dates: start: 20101223, end: 2011
  7. INFLIXIMAB [Suspect]
     Active Substance: INFLIXIMAB
     Indication: Coeliac disease
     Dosage: 5 MG/KG EVERY 6 WEEKS
     Route: 065
  8. INFLIXIMAB [Suspect]
     Active Substance: INFLIXIMAB
     Indication: Colitis ulcerative
     Dosage: 5 MG/KG EVERY 8 WEEKS, 5MG/KG/DOSE, INTERVAL 6 WEEKS, INTRAVENOUS INFUSION; TOTAL ADMINISTRATION DUR
     Route: 042
     Dates: start: 2011, end: 20110717

REACTIONS (10)
  - Posterior reversible encephalopathy syndrome [Recovered/Resolved]
  - Diarrhoea haemorrhagic [Unknown]
  - Hypertension [Recovered/Resolved]
  - Condition aggravated [Unknown]
  - Loss of consciousness [Recovered/Resolved]
  - Therapeutic product effect incomplete [Unknown]
  - Off label use [Unknown]
  - Overdose [Unknown]
  - Colitis ulcerative [Recovering/Resolving]
  - Therapeutic response shortened [Unknown]

NARRATIVE: CASE EVENT DATE: 20110727
